FAERS Safety Report 10086384 (Version 1)
Quarter: 2014Q2

REPORT INFORMATION
  Report Type: Spontaneous
  Country: CA (occurrence: CA)
  Receive Date: 20140418
  Receipt Date: 20140418
  Transmission Date: 20141212
  Serious: Yes (Other)
  Sender: FDA-Public Use
  Company Number: CA-PFIZER INC-2014108184

PATIENT
  Sex: 0

DRUGS (1)
  1. CHAMPIX [Suspect]
     Dosage: UNK

REACTIONS (5)
  - Alcohol interaction [Unknown]
  - Suicidal ideation [Unknown]
  - Depression [Unknown]
  - Aggression [Unknown]
  - Hostility [Unknown]
